FAERS Safety Report 8984788 (Version 1)
Quarter: 2012Q4

REPORT INFORMATION
  Report Type: 
  Country: BE (occurrence: BE)
  Receive Date: 20121226
  Receipt Date: 20121226
  Transmission Date: 20130627
  Serious: Yes (Other)
  Sender: FDA-Public Use
  Company Number: BE-JNJFOC-20121207354

PATIENT
  Age: 30 Year
  Sex: Female

DRUGS (1)
  1. LISTERINE TOTAL CARE [Suspect]
     Indication: PRODUCT USED FOR UNKNOWN INDICATION
     Route: 048

REACTIONS (2)
  - Burns second degree [Unknown]
  - Fungal infection [Unknown]
